FAERS Safety Report 6066625-5 (Version None)
Quarter: 2009Q1

REPORT INFORMATION
  Report Type: 
  Country: None (occurrence: None)
  Receive Date: 20090205
  Receipt Date: 20090130
  Transmission Date: 20090719
  Serious: Yes (Life-Threatening, Hospitalization)
  Sender: FDA-Public Use
  Company Number: B0557605A

PATIENT
  Age: 21 Year
  Sex: Female

DRUGS (14)
  1. ORBENINE [Suspect]
     Indication: ERYTHROSIS
     Dosage: 1G TWICE PER DAY
     Route: 048
     Dates: start: 20081206, end: 20081212
  2. PYOSTACINE [Suspect]
     Indication: ERYTHROSIS
     Dosage: 1G TWICE PER DAY
     Route: 048
     Dates: start: 20081202, end: 20081206
  3. XYZAL [Suspect]
     Indication: ERYTHROSIS
     Dosage: 10MG PER DAY
     Route: 048
     Dates: start: 20081202, end: 20081206
  4. FUCIDINE CAP [Suspect]
     Indication: ERYTHROSIS
     Route: 061
     Dates: start: 20081202, end: 20081206
  5. DIASEPTYL [Suspect]
     Indication: ERYTHROSIS
     Route: 061
     Dates: start: 20081202, end: 20081206
  6. EFFICORT [Suspect]
     Indication: ERYTHROSIS
     Route: 061
     Dates: start: 20081206, end: 20081212
  7. MUPIDERM [Suspect]
     Indication: ERYTHROSIS
     Route: 061
     Dates: start: 20081206, end: 20081210
  8. AUREOMYCINE [Concomitant]
     Dates: start: 20081201
  9. CELESTAMINE TAB [Concomitant]
     Dates: start: 20081211
  10. DESONIDE [Concomitant]
     Dates: start: 20081211
  11. AUGMENTIN '125' [Concomitant]
     Dates: start: 20081213
  12. BRISTOPEN [Concomitant]
     Dates: start: 20081213
  13. NETROMYCIN [Concomitant]
     Dates: start: 20081213
  14. CEFTRIAXONE [Concomitant]

REACTIONS (10)
  - BLISTER [None]
  - DIARRHOEA [None]
  - OEDEMA [None]
  - PURPURA [None]
  - PYREXIA [None]
  - RASH GENERALISED [None]
  - SKIN DISORDER [None]
  - SKIN EXFOLIATION [None]
  - SKIN LESION [None]
  - TOXIC EPIDERMAL NECROLYSIS [None]
